FAERS Safety Report 7650446-3 (Version None)
Quarter: 2011Q3

REPORT INFORMATION
  Report Type: 
  Country: None (occurrence: None)
  Receive Date: 20110727
  Receipt Date: 20110404
  Transmission Date: 20111222
  Serious: Yes (Disabling)
  Sender: FDA-Public Use
  Company Number: WAES 1104USA00535

PATIENT
  Sex: Female

DRUGS (5)
  1. SINEMET CR [Suspect]
     Indication: DYSKINESIA
     Dosage: PO
     Route: 048
  2. SINEMET CR [Suspect]
     Indication: PARKINSON'S DISEASE
     Dosage: PO
     Route: 048
  3. ARICEPT [Concomitant]
  4. SINEMET [Suspect]
     Indication: DYSKINESIA
     Dosage: 1 TAB/PO ; PO
     Route: 048
     Dates: start: 20110403
  5. SINEMET [Suspect]
     Indication: PARKINSON'S DISEASE
     Dosage: 1 TAB/PO ; PO
     Route: 048
     Dates: start: 20110403

REACTIONS (3)
  - DYSKINESIA [None]
  - ANXIETY [None]
  - WRONG TECHNIQUE IN DRUG USAGE PROCESS [None]
